FAERS Safety Report 8572356-X (Version None)
Quarter: 2012Q3

REPORT INFORMATION
  Report Type: 
  Country: None (occurrence: None)
  Receive Date: 20120806
  Receipt Date: 20120725
  Transmission Date: 20120928
  Serious: Yes (Hospitalization)
  Sender: FDA-Public Use
  Company Number: ES-FOUGERA-2012FO001274

PATIENT
  Age: 70 Year
  Sex: Male

DRUGS (1)
  1. SOLARAZE [Suspect]
     Indication: PRODUCT USED FOR UNKNOWN INDICATION

REACTIONS (1)
  - CARDIAC PACEMAKER INSERTION [None]
